FAERS Safety Report 22251993 (Version 4)
Quarter: 2023Q2

REPORT INFORMATION
  Report Type: Report from Study
  Country: US (occurrence: US)
  Receive Date: 20230425
  Receipt Date: 20230502
  Transmission Date: 20230721
  Serious: Yes (Other)
  Sender: FDA-Public Use
  Company Number: US-ABBVIE-4741692

PATIENT

DRUGS (3)
  1. VENCLEXTA [Suspect]
     Active Substance: VENETOCLAX
     Indication: Chronic lymphocytic leukaemia
     Route: 048
  2. GAZYVA [Suspect]
     Active Substance: OBINUTUZUMAB
     Indication: Product used for unknown indication
     Route: 065
  3. GAZYVA [Suspect]
     Active Substance: OBINUTUZUMAB
     Indication: Product used for unknown indication
     Route: 065

REACTIONS (9)
  - Cytopenia [Unknown]
  - Tumour lysis syndrome [Unknown]
  - Diarrhoea [Unknown]
  - Fungal infection [Unknown]
  - Neutropenia [Unknown]
  - Thrombocytopenia [Unknown]
  - Neutropenia neonatal [Unknown]
  - Aspergillus infection [Unknown]
  - Stevens-Johnson syndrome [Unknown]
